FAERS Safety Report 20368328 (Version 1)
Quarter: 2022Q1

REPORT INFORMATION
  Report Type: Spontaneous
  Country: BR (occurrence: BR)
  Receive Date: 20220124
  Receipt Date: 20220124
  Transmission Date: 20220423
  Serious: Yes (Hospitalization, Other)
  Sender: FDA-Public Use
  Company Number: BR-AUROBINDO-AUR-APL-2022-001710

PATIENT
  Age: 62 Year
  Sex: Female

DRUGS (1)
  1. BELEODAQ [Suspect]
     Active Substance: BELINOSTAT
     Indication: Peripheral T-cell lymphoma unspecified
     Dosage: 500 MILLIGRAM (UNDERWENT 3 CYCLES)
     Route: 065

REACTIONS (2)
  - Embolism venous [Unknown]
  - Coronavirus infection [Unknown]
